FAERS Safety Report 6494697-2 (Version None)
Quarter: 2009Q4

REPORT INFORMATION
  Report Type: 
  Country: None (occurrence: None)
  Receive Date: 20091214
  Receipt Date: 20090513
  Transmission Date: 20100525
  Serious: No
  Sender: FDA-Public Use
  Company Number: US-BRISTOL-MYERS SQUIBB COMPANY-14545701

PATIENT
  Age: 56 Year
  Sex: Female

DRUGS (3)
  1. ABILIFY [Suspect]
     Indication: BIPOLAR DISORDER
     Route: 048
     Dates: start: 20080125
  2. ABILIFY [Suspect]
     Indication: MOOD SWINGS
     Route: 048
     Dates: start: 20080125
  3. ABILIFY [Suspect]
     Indication: ATTENTION DEFICIT/HYPERACTIVITY DISORDER
     Route: 048
     Dates: start: 20080125

REACTIONS (7)
  - BURNING MOUTH SYNDROME [None]
  - DRY MOUTH [None]
  - GLOSSODYNIA [None]
  - MOUTH ULCERATION [None]
  - ORAL INFECTION [None]
  - SIALOADENITIS [None]
  - TARDIVE DYSKINESIA [None]
